FAERS Safety Report 5518756-3 (Version None)
Quarter: 2007Q4

REPORT INFORMATION
  Report Type: 
  Country: None (occurrence: None)
  Receive Date: 20071113
  Receipt Date: 20071107
  Transmission Date: 20080405
  Serious: Yes (Death, Life-Threatening, Hospitalization)
  Sender: FDA-Public Use
  Company Number: 056-C5013-07050798

PATIENT
  Age: 69 Year
  Sex: Male
  Weight: 76 kg

DRUGS (4)
  1. CC-5013 (LENALIDOMIDE) (CAPSULES) [Suspect]
     Indication: MYELODYSPLASTIC SYNDROME
     Dosage: 5 MG, DAILY, ORAL ; 5 MG, DAILY, ORAL
     Route: 048
     Dates: start: 20060504, end: 20070516
  2. CC-5013 (LENALIDOMIDE) (CAPSULES) [Suspect]
     Indication: MYELODYSPLASTIC SYNDROME
     Dosage: 5 MG, DAILY, ORAL ; 5 MG, DAILY, ORAL
     Route: 048
     Dates: start: 20060506
  3. CC-5013\PLACEBO (LENALIDOMIDE)(CAPSULES) [Suspect]
     Indication: MYELODYSPLASTIC SYNDROME
     Dosage: PER ORAL
     Route: 048
     Dates: start: 20061216
  4. FLUOROQUINOLONE (FLUOROQUINOLONES) [Concomitant]

REACTIONS (20)
  - ACUTE RESPIRATORY DISTRESS SYNDROME [None]
  - AGITATION [None]
  - ANXIETY [None]
  - BRONCHITIS BACTERIAL [None]
  - CARDIAC ARREST [None]
  - COAGULOPATHY [None]
  - DYSPNOEA [None]
  - EJECTION FRACTION DECREASED [None]
  - HAEMOPTYSIS [None]
  - HYPERHIDROSIS [None]
  - HYPERVENTILATION [None]
  - HYPOXIA [None]
  - PCO2 DECREASED [None]
  - PO2 DECREASED [None]
  - PROTHROMBIN TIME SHORTENED [None]
  - PULMONARY ALVEOLAR HAEMORRHAGE [None]
  - PULMONARY HYPERTENSION [None]
  - PYREXIA [None]
  - TACHYPNOEA [None]
  - THROMBOCYTOPENIA [None]
